FAERS Safety Report 5962591-9 (Version None)
Quarter: 2008Q4

REPORT INFORMATION
  Report Type: 
  Country: None (occurrence: None)
  Receive Date: 20081121
  Receipt Date: 20081112
  Transmission Date: 20090506
  Serious: Yes (Death)
  Sender: FDA-Public Use
  Company Number: JP-PFIZER INC-2008096135

PATIENT
  Sex: Female
  Weight: 39 kg

DRUGS (14)
  1. AZULFIDINE [Suspect]
     Indication: RHEUMATOID ARTHRITIS
     Route: 048
     Dates: start: 20081029, end: 20081105
  2. OMEPRAL [Concomitant]
     Route: 048
     Dates: start: 20081028, end: 20081106
  3. OLMETEC [Concomitant]
     Route: 048
     Dates: start: 20081028, end: 20081106
  4. CALBLOCK [Concomitant]
     Route: 048
     Dates: start: 20081028, end: 20081106
  5. PREDONINE [Concomitant]
     Route: 048
     Dates: end: 20081106
  6. ALOSENN [Concomitant]
     Route: 048
     Dates: end: 20081106
  7. SELBEX [Concomitant]
     Route: 048
     Dates: end: 20081106
  8. DOGMATYL [Concomitant]
     Route: 048
     Dates: end: 20081106
  9. DEPAS [Concomitant]
     Route: 048
     Dates: end: 20081106
  10. SILECE [Concomitant]
     Route: 048
     Dates: end: 20081106
  11. FLUVOXAMINE MALEATE [Concomitant]
     Route: 048
     Dates: end: 20081106
  12. LOXONIN [Concomitant]
     Route: 048
     Dates: end: 20081106
  13. INTEBAN [Concomitant]
     Route: 054
     Dates: end: 20081106
  14. ROCALTROL [Concomitant]
     Route: 048
     Dates: start: 20081031, end: 20081106

REACTIONS (3)
  - HEPATITIS FULMINANT [None]
  - INTERSTITIAL LUNG DISEASE [None]
  - RENAL FAILURE ACUTE [None]
